FAERS Safety Report 15959610 (Version 1)
Quarter: 2019Q1

REPORT INFORMATION
  Report Type: Spontaneous
  Country: US (occurrence: US)
  Receive Date: 20190214
  Receipt Date: 20190214
  Transmission Date: 20190417
  Serious: Yes (Other)
  Sender: FDA-Public Use
  Company Number: US-LUPIN PHARMACEUTICALS INC.-2019-00711

PATIENT
  Sex: Female

DRUGS (1)
  1. SOLOSEC [Suspect]
     Active Substance: SECNIDAZOLE
     Indication: BACTERIAL VAGINOSIS
     Dosage: 2 GM, SINGLE
     Route: 048
     Dates: start: 201901, end: 201901

REACTIONS (3)
  - Chromaturia [Unknown]
  - Nausea [Unknown]
  - Loss of consciousness [Unknown]
